FAERS Safety Report 5630203-X (Version None)
Quarter: 2008Q1

REPORT INFORMATION
  Report Type: 
  Country: None (occurrence: None)
  Receive Date: 20080219
  Receipt Date: 20080207
  Transmission Date: 20080703
  Serious: Yes (Death, Hospitalization)
  Sender: FDA-Public Use
  Company Number: FR-JNJFOC-20080105468

PATIENT
  Sex: Male

DRUGS (13)
  1. CONTRAMAL [Suspect]
     Indication: PAIN
     Route: 048
     Dates: start: 20071101, end: 20071109
  2. OFLOCET [Suspect]
     Indication: DRUG USE FOR UNKNOWN INDICATION
     Route: 042
     Dates: start: 20071102, end: 20071108
  3. GENTALLINE [Suspect]
     Indication: DRUG USE FOR UNKNOWN INDICATION
     Route: 042
     Dates: start: 20071102, end: 20071104
  4. TAZOCILLINE [Suspect]
     Indication: DRUG USE FOR UNKNOWN INDICATION
     Route: 042
     Dates: start: 20071102, end: 20071110
  5. RIVOTRIL [Concomitant]
     Dosage: 15 DROPS A DAY
     Route: 065
  6. RISPERDAL [Concomitant]
     Route: 065
  7. SEROPRAM [Concomitant]
     Route: 065
  8. SECTRAL [Concomitant]
     Route: 065
  9. NEXIUM [Concomitant]
     Route: 065
  10. ARTANE [Concomitant]
     Route: 065
  11. FORLAX [Concomitant]
     Route: 065
  12. AUGMENTIN '250' [Concomitant]
     Route: 065
  13. OTHER CHEMOTHERAPEUTICS [Concomitant]
     Route: 065

REACTIONS (2)
  - EPILEPSY [None]
  - SEPSIS [None]
